FAERS Safety Report 5105651-7 (Version None)
Quarter: 2006Q3

REPORT INFORMATION
  Report Type: 
  Country: None (occurrence: None)
  Receive Date: 20060915
  Receipt Date: 20050808
  Transmission Date: 20061208
  Serious: Yes (Other)
  Sender: FDA-Public Use
  Company Number: 200516126US

PATIENT
  Sex: Female
  Weight: 55 kg

DRUGS (1)
  1. TENUATE [Suspect]
     Indication: WEIGHT CONTROL
     Dosage: DOSE: UNK

REACTIONS (1)
  - PULMONARY HYPERTENSION [None]
